FAERS Safety Report 6021596-2 (Version None)
Quarter: 2008Q4

REPORT INFORMATION
  Report Type: 
  Country: None (occurrence: None)
  Receive Date: 20081229
  Receipt Date: 20081229
  Transmission Date: 20090506
  Serious: Yes (Death, Hospitalization)
  Sender: FDA-Public Use
  Company Number: PHHY2008GB33319

PATIENT
  Age: 41 Year
  Sex: Male

DRUGS (3)
  1. CARBAMAZEPINE [Suspect]
     Dosage: UNK
     Route: 048
     Dates: start: 20081017, end: 20081118
  2. TAZOCIN [Concomitant]
     Indication: PYREXIA
     Dosage: 4.5 G, TID
     Dates: start: 20081120, end: 20081123
  3. PARACETAMOL [Concomitant]

REACTIONS (6)
  - DYSPNOEA [None]
  - FLUID RETENTION [None]
  - LIVER FUNCTION TEST ABNORMAL [None]
  - MYOCARDITIS [None]
  - PYREXIA [None]
  - STEVENS-JOHNSON SYNDROME [None]
